FAERS Safety Report 24976760 (Version 2)
Quarter: 2025Q3

REPORT INFORMATION
  Report Type: Spontaneous
  Country: US (occurrence: None)
  Receive Date: 20250217
  Receipt Date: 20250810
  Transmission Date: 20251021
  Serious: No
  Sender: ALEXION PHARMACEUTICALS
  Company Number: US-AstraZeneca-2005UW04927

PATIENT
  Age: 65 Year
  Sex: Male
  Weight: 76.2 kg

DRUGS (2)
  1. NEXIUM [Suspect]
     Active Substance: ESOMEPRAZOLE MAGNESIUM
     Indication: Gastrooesophageal reflux disease
     Dosage: 40 MILLIGRAM, QD
     Dates: start: 20050326
  2. ATENOLOL [Concomitant]
     Active Substance: ATENOLOL

REACTIONS (1)
  - Tinnitus [Recovered/Resolved]
